FAERS Safety Report 11965773 (Version 1)
Quarter: 2016Q1

REPORT INFORMATION
  Report Type: Spontaneous
  Country: US (occurrence: None)
  Receive Date: 20160126
  Receipt Date: 20160126
  Transmission Date: 20160526
  Serious: Yes (Life-Threatening)
  Sender: FDA-Public Use
  Company Number: None

PATIENT
  Age: 82 Year
  Sex: Male
  Weight: 72.58 kg

DRUGS (6)
  1. ISOSORBIDE MN TAB 120MG ER 120MG TORRENT [Suspect]
     Active Substance: ISOSORBIDE MONONITRATE
     Indication: ANGINA PECTORIS
     Dosage: 1 PILL
     Route: 048
     Dates: start: 20151224, end: 20160111
  2. TAMULOSIN [Concomitant]
     Active Substance: TAMSULOSIN
  3. AMLODIPINE [Concomitant]
     Active Substance: AMLODIPINE BESYLATE
  4. PANTOPRAZOLE [Concomitant]
     Active Substance: PANTOPRAZOLE SODIUM
  5. CLOPIDOGREL [Concomitant]
     Active Substance: CLOPIDOGREL BISULFATE
  6. ASPIRIN. [Concomitant]
     Active Substance: ASPIRIN

REACTIONS (4)
  - Product size issue [None]
  - Angina pectoris [None]
  - Disease recurrence [None]
  - Product quality issue [None]

NARRATIVE: CASE EVENT DATE: 20160111
